FAERS Safety Report 9385931 (Version 2)
Quarter: 2014Q1

REPORT INFORMATION
  Report Type: Report from Study
  Country: JP (occurrence: JP)
  Receive Date: 20130705
  Receipt Date: 20140227
  Transmission Date: 20141002
  Serious: Yes (Death)
  Sender: FDA-Public Use
  Company Number: JP-009507513-1307JPN002798

PATIENT
  Age: 50 Year
  Sex: Male

DRUGS (4)
  1. ISENTRESS TABLETS 400MG [Suspect]
     Indication: HIV INFECTION
     Dosage: 800 MG 1 DAY, DIVIDED DOSE FREQUENCY UNKNOWN
     Route: 048
     Dates: start: 20100921, end: 2013
  2. EPZICOM [Suspect]
     Indication: HIV INFECTION
     Dosage: 1 DF, 1 DAY, DIVIDED DOSE FREQUENCY UNKNOWN
     Route: 048
     Dates: start: 20091228, end: 2013
  3. MEVALOTIN [Concomitant]
     Indication: HYPERLIPIDAEMIA
     Dosage: 5 MG, QD
     Route: 048
     Dates: end: 2013
  4. AMLODIN (AMLODIPINE BESYLATE) [Concomitant]
     Indication: HYPERTENSION
     Dosage: 5 MG, QD
     Route: 048
     Dates: start: 20110619, end: 2013

REACTIONS (1)
  - Completed suicide [Fatal]
